FAERS Safety Report 4621146-9 (Version None)
Quarter: 2005Q1

REPORT INFORMATION
  Report Type: 
  Country: None (occurrence: None)
  Receive Date: 20050328
  Receipt Date: 20050315
  Transmission Date: 20050727
  Serious: Yes (Hospitalization)
  Sender: FDA-Public Use
  Company Number: 2005GB00540

PATIENT
  Age: 88 Year
  Sex: Female
  Weight: 78 kg

DRUGS (1)
  1. NOLVADEX [Suspect]
     Indication: BREAST CANCER
     Dosage: 20 MG QD PO
     Route: 048
     Dates: start: 19990121, end: 20040205

REACTIONS (2)
  - FALL [None]
  - FEMORAL NECK FRACTURE [None]
